FAERS Safety Report 23877329 (Version 2)
Quarter: 2024Q3

REPORT INFORMATION
  Report Type: Report from Study
  Country: US (occurrence: US)
  Receive Date: 20240521
  Receipt Date: 20240920
  Transmission Date: 20241017
  Serious: Yes (Other)
  Sender: TAKEDA
  Company Number: US-TAKEDA-2023TUS085966

PATIENT
  Sex: Female

DRUGS (5)
  1. PONATINIB [Suspect]
     Active Substance: PONATINIB
     Indication: Chronic myeloid leukaemia
     Dosage: 30 MILLIGRAM, QD
     Route: 048
  2. PONATINIB [Suspect]
     Active Substance: PONATINIB
     Dosage: 30 MILLIGRAM, QD
     Route: 048
  3. PONATINIB [Suspect]
     Active Substance: PONATINIB
     Dosage: 30 MILLIGRAM, QD
     Route: 048
  4. PONATINIB [Suspect]
     Active Substance: PONATINIB
     Dosage: 15 MILLIGRAM, QD
     Route: 048
  5. SPRYCEL [Concomitant]
     Active Substance: DASATINIB
     Dosage: UNK
     Route: 065

REACTIONS (10)
  - Hepatitis [Unknown]
  - Dry skin [Unknown]
  - Headache [Unknown]
  - Back pain [Unknown]
  - Pain in extremity [Unknown]
  - Erythema [Unknown]
  - Pyrexia [Unknown]
  - Pain [Unknown]
  - Constipation [Unknown]
  - Off label use [Unknown]
